FAERS Safety Report 26193963 (Version 1)
Quarter: 2025Q4

REPORT INFORMATION
  Report Type: Other
  Country: CA (occurrence: CA)
  Receive Date: 20251224
  Receipt Date: 20251224
  Transmission Date: 20260118
  Serious: Yes (Other)
  Sender: Atnahs Healthcare
  Company Number: CA-ATNAHS-2025-PMNV-CA002187

PATIENT

DRUGS (7)
  1. EC-NAPROSYN [Suspect]
     Active Substance: NAPROXEN
     Indication: Arthritis
     Dosage: 12 MILLIGRAM/KILOGRAM
     Route: 065
  2. EC-NAPROSYN [Suspect]
     Active Substance: NAPROXEN
     Dosage: 10 MILLIGRAM/KILOGRAM
     Route: 065
  3. CISPLATIN [Suspect]
     Active Substance: CISPLATIN
     Indication: Epithelioid mesothelioma
     Dosage: UNK (CYCLICAL)
     Route: 042
  4. NIVOLUMAB [Suspect]
     Active Substance: NIVOLUMAB
     Indication: Epithelioid mesothelioma
     Dosage: UNK (CYCLICAL)
     Route: 065
  5. YERVOY [Suspect]
     Active Substance: IPILIMUMAB
     Indication: Epithelioid mesothelioma
     Dosage: UNK (CYCLICAL)
     Route: 065
  6. PREDNISOLONE [Concomitant]
     Active Substance: PREDNISOLONE
     Indication: Product used for unknown indication
     Dosage: UNK
     Route: 065
  7. PEMETREXED [Concomitant]
     Active Substance: PEMETREXED
     Indication: Product used for unknown indication
     Dosage: UNK
     Route: 065

REACTIONS (9)
  - Antinuclear antibody [Unknown]
  - Arthritis [Unknown]
  - Gastrointestinal disorder [Unknown]
  - Investigation [Unknown]
  - Physical examination [Unknown]
  - Rheumatoid factor [Unknown]
  - Serology test [Unknown]
  - Anaphylactic reaction [Unknown]
  - Drug ineffective [Unknown]
